FAERS Safety Report 6604246-3 (Version None)
Quarter: 2010Q1

REPORT INFORMATION
  Report Type: 
  Country: None (occurrence: None)
  Receive Date: 20100226
  Receipt Date: 20090720
  Transmission Date: 20100710
  Serious: No
  Sender: FDA-Public Use
  Company Number: A0797650A

PATIENT
  Age: 39 Year
  Sex: Female

DRUGS (2)
  1. LAMICTAL CD [Suspect]
     Indication: BIPOLAR DISORDER
     Dosage: 350MG AT NIGHT
     Route: 048
  2. NO CONCURRENT MEDICATION [Concomitant]

REACTIONS (5)
  - MOTOR DYSFUNCTION [None]
  - NERVOUSNESS [None]
  - OVERDOSE [None]
  - SOMNOLENCE [None]
  - SPEECH DISORDER [None]
